FAERS Safety Report 9289427 (Version 1)
Quarter: 2013Q2

REPORT INFORMATION
  Report Type: Spontaneous
  Country: SA (occurrence: SA)
  Receive Date: 20130514
  Receipt Date: 20130514
  Transmission Date: 20140414
  Serious: Yes (Hospitalization)
  Sender: FDA-Public Use
  Company Number: SA-BIOMARINAP-SA-2013-100781

PATIENT
  Sex: Female
  Weight: 13.5 kg

DRUGS (1)
  1. NAGLAZYME [Suspect]
     Indication: PRODUCT USED FOR UNKNOWN INDICATION
     Dosage: 15 MG, QW
     Route: 041
     Dates: start: 201212

REACTIONS (1)
  - Fall [Recovering/Resolving]
